FAERS Safety Report 15042563 (Version 1)
Quarter: 2018Q2

REPORT INFORMATION
  Report Type: Report from Study
  Country: BR (occurrence: BR)
  Receive Date: 20180621
  Receipt Date: 20180621
  Transmission Date: 20180711
  Serious: Yes (Hospitalization)
  Sender: FDA-Public Use
  Company Number: PHHY2018BR021919

PATIENT
  Age: 67 Year
  Sex: Female
  Weight: 78 kg

DRUGS (1)
  1. COSENTYX [Suspect]
     Active Substance: SECUKINUMAB
     Indication: PSORIATIC ARTHROPATHY
     Dosage: 300 MG (2 PENS 150MG), QMO
     Route: 058
     Dates: start: 201707, end: 20180522

REACTIONS (8)
  - Erythema [Unknown]
  - Blood pressure fluctuation [Unknown]
  - Weight decreased [Unknown]
  - Dizziness [Unknown]
  - Malaise [Unknown]
  - Vomiting [Unknown]
  - Pain in jaw [Unknown]
  - Facial pain [Unknown]

NARRATIVE: CASE EVENT DATE: 201801
